FAERS Safety Report 6878374-1 (Version None)
Quarter: 2010Q2

REPORT INFORMATION
  Report Type: 
  Country: None (occurrence: None)
  Receive Date: 20100624
  Receipt Date: 20100607
  Transmission Date: 20101027
  Serious: No
  Sender: FDA-Public Use
  Company Number: 2010-00470

PATIENT
  Age: 32 Year
  Sex: Male
  Weight: 65.7716 kg

DRUGS (4)
  1. ZICAM COLD REMEDY NASAL GEL [Suspect]
     Dosage: SPORADIC, OVER 2 YEARS
  2. ZICAM COLD REMEDY ORAL MIST [Suspect]
     Dosage: SPORADIC, OVER 2 YEARS
  3. ZICAM COLD REMEDY RAPIDMELTS WITH VITAMIN C [Suspect]
     Dosage: SPORADIC, OVER 2 YEARS
  4. ZICAM COLD REMEDY RAPIDMELTS [Suspect]
     Dosage: SPORADIC, OVER 2 YEARS

REACTIONS (2)
  - AGEUSIA [None]
  - ANOSMIA [None]
